FAERS Safety Report 8237644-5 (Version None)
Quarter: 2012Q1

REPORT INFORMATION
  Report Type: 
  Country: None (occurrence: None)
  Receive Date: 20120327
  Receipt Date: 20120322
  Transmission Date: 20120608
  Serious: Yes (Death)
  Sender: FDA-Public Use
  Company Number: JP-SANOFI-AVENTIS-2012SA020454

PATIENT
  Sex: Male

DRUGS (2)
  1. TAXOTERE [Suspect]
     Indication: PROSTATE CANCER
     Route: 065
  2. TAXOTERE [Suspect]
     Route: 042
     Dates: start: 20120308, end: 20120311

REACTIONS (1)
  - INTERSTITIAL LUNG DISEASE [None]
